FAERS Safety Report 5203626-0 (Version None)
Quarter: 2007Q1

REPORT INFORMATION
  Report Type: 
  Country: None (occurrence: None)
  Receive Date: 20070110
  Receipt Date: 20070102
  Transmission Date: 20070707
  Serious: Yes (Disabling, Other)
  Sender: FDA-Public Use
  Company Number: 2006CG00763

PATIENT
  Age: 658 Month
  Sex: Female

DRUGS (6)
  1. CRESTOR [Suspect]
     Indication: HYPERCHOLESTEROLAEMIA
     Route: 048
     Dates: start: 20051221, end: 20060131
  2. ZELITREX [Suspect]
     Indication: ANTIVIRAL PROPHYLAXIS
     Route: 048
     Dates: start: 20051201, end: 20060131
  3. SERESTA [Concomitant]
     Dates: end: 20060131
  4. MEPRONIZINE [Concomitant]
     Dates: end: 20060131
  5. MOTILIUM [Concomitant]
     Indication: NAUSEA
     Dates: start: 20051201, end: 20060131
  6. LAMALINE [Concomitant]
     Indication: OSTEOARTHRITIS
     Dates: end: 20060131

REACTIONS (18)
  - ALANINE AMINOTRANSFERASE INCREASED [None]
  - ASPARTATE AMINOTRANSFERASE INCREASED [None]
  - BLOOD CREATINE PHOSPHOKINASE INCREASED [None]
  - BLOOD LACTATE DEHYDROGENASE INCREASED [None]
  - CYTOMEGALOVIRUS ANTIBODY POSITIVE [None]
  - EYE IRRITATION [None]
  - FALL [None]
  - HERPES VIRUS INFECTION [None]
  - MUCOSAL EROSION [None]
  - MUSCLE ENZYME INCREASED [None]
  - MYALGIA [None]
  - OCULAR HYPERAEMIA [None]
  - PERIPHERAL VASCULAR DISORDER [None]
  - SKELETAL INJURY [None]
  - SKIN DISCOLOURATION [None]
  - TRANSAMINASES INCREASED [None]
  - VARICOSE VEIN [None]
  - WEIGHT DECREASED [None]
